FAERS Safety Report 4622337-3 (Version None)
Quarter: 2005Q1

REPORT INFORMATION
  Report Type: 
  Country: None (occurrence: None)
  Receive Date: 20050324
  Receipt Date: 20050324
  Transmission Date: 20050727
  Serious: No
  Sender: FDA-Public Use
  Company Number: None

PATIENT
  Age: 14 Year
  Sex: Female
  Weight: 52.6173 kg

DRUGS (2)
  1. SYNTHROID [Suspect]
     Indication: AUTOIMMUNE THYROIDITIS
     Dosage: 1 TABLET  6 DAYS PER WEEK ORAL
     Route: 048
     Dates: start: 20030815, end: 20050209
  2. SYNTHROID [Suspect]
     Indication: HYPOTHYROIDISM
     Dosage: 1 TABLET  6 DAYS PER WEEK ORAL
     Route: 048
     Dates: start: 20030815, end: 20050209

REACTIONS (6)
  - DIARRHOEA [None]
  - ENERGY INCREASED [None]
  - FREQUENT BOWEL MOVEMENTS [None]
  - HYPERTHYROIDISM [None]
  - OVERDOSE [None]
  - PHARMACEUTICAL PRODUCT COMPLAINT [None]
